FAERS Safety Report 22099940 (Version 2)
Quarter: 2023Q1

REPORT INFORMATION
  Report Type: Report from Study
  Country: JP (occurrence: JP)
  Receive Date: 20230315
  Receipt Date: 20230324
  Transmission Date: 20230417
  Serious: Yes (Hospitalization)
  Sender: FDA-Public Use
  Company Number: JP-Eisai-202215509_PENT_C_1

PATIENT
  Age: 57 Year
  Sex: Male
  Weight: 73 kg

DRUGS (25)
  1. E-7386 [Suspect]
     Active Substance: E-7386
     Indication: Neoplasm
     Route: 048
     Dates: start: 20220317, end: 20230103
  2. E-7386 [Suspect]
     Active Substance: E-7386
     Route: 048
     Dates: start: 20230104, end: 20230220
  3. LENVATINIB [Suspect]
     Active Substance: LENVATINIB
     Indication: Neoplasm
     Route: 048
     Dates: start: 20220323, end: 20230103
  4. LENVATINIB [Suspect]
     Active Substance: LENVATINIB
     Route: 048
     Dates: start: 20230104, end: 20230220
  5. BETAHISTINE MESILATE [Concomitant]
     Active Substance: BETAHISTINE MESILATE
     Indication: Dizziness
     Dates: start: 20220506
  6. OLMESARTAN MEDOXOMIL [Concomitant]
     Active Substance: OLMESARTAN MEDOXOMIL
     Indication: Hypertension
     Dates: start: 2019
  7. NORVASC [Concomitant]
     Active Substance: AMLODIPINE BESYLATE
     Indication: Hypertension
     Dates: start: 2019
  8. VONOPRAZAN FUMARATE [Concomitant]
     Active Substance: VONOPRAZAN FUMARATE
     Indication: Gastritis prophylaxis
     Dates: start: 20200118
  9. BARACLUDE [Concomitant]
     Active Substance: ENTECAVIR
     Indication: Hepatitis B
     Dates: start: 1982
  10. LEVOCARNITINE [Concomitant]
     Active Substance: LEVOCARNITINE
     Indication: Seizure
     Dates: start: 20211102
  11. URSO [Concomitant]
     Active Substance: URSODIOL
     Indication: Hepatitis B
     Dates: start: 1982
  12. MIYA-BM [Concomitant]
     Active Substance: CLOSTRIDIUM BUTYRICUM SPORES STRAIN M-55
     Indication: Diarrhoea
     Dates: start: 20220317
  13. DIPHENHYDRAMINE [Concomitant]
     Active Substance: DIPHENHYDRAMINE
     Indication: Pruritus
     Dates: start: 20220324
  14. ALBUMIN TANNATE [Concomitant]
     Active Substance: ALBUMIN TANNATE
     Indication: Diarrhoea
     Dates: start: 20220331
  15. LOPERAMIDE HYDROCHLORIDE [Concomitant]
     Active Substance: LOPERAMIDE HYDROCHLORIDE
     Indication: Diarrhoea
     Dates: start: 20220420
  16. MYSER [Concomitant]
     Indication: Palmar-plantar erythrodysaesthesia syndrome
     Dates: start: 20220420
  17. HERBALS [Concomitant]
     Active Substance: HERBALS
     Indication: Seizure
     Dates: start: 20220420
  18. DEXTROMETHORPHAN HYDROBROMIDE [Concomitant]
     Active Substance: DEXTROMETHORPHAN HYDROBROMIDE
     Indication: Cough
     Dates: start: 20220517
  19. DEXTROMETHORPHAN HYDROBROMIDE [Concomitant]
     Active Substance: DEXTROMETHORPHAN HYDROBROMIDE
     Indication: COVID-19
     Dates: start: 20230207, end: 20230307
  20. VEMLIDY [Concomitant]
     Active Substance: TENOFOVIR ALAFENAMIDE FUMARATE
     Indication: Hepatitis B
     Dates: start: 20221004
  21. TOPSYM [Concomitant]
     Indication: Eczema
     Dates: start: 20221004
  22. LOXOPROFEN [Concomitant]
     Active Substance: LOXOPROFEN
     Indication: Prophylaxis
     Dates: start: 20230221, end: 20230302
  23. TEPRENONE [Concomitant]
     Active Substance: TEPRENONE
     Indication: Gastritis prophylaxis
     Dates: start: 20221227
  24. CELLULASE\DIASTASE\LIPASE [Concomitant]
     Active Substance: CELLULASE\DIASTASE\LIPASE
     Indication: Gastrointestinal disorder
     Dates: start: 20230124
  25. LYRICA [Concomitant]
     Active Substance: PREGABALIN
     Indication: Sciatica
     Dates: start: 20230124

REACTIONS (1)
  - Rhegmatogenous retinal detachment [Recovering/Resolving]

NARRATIVE: CASE EVENT DATE: 20230220
